FAERS Safety Report 7915372-0 (Version None)
Quarter: 2011Q4

REPORT INFORMATION
  Report Type: 
  Country: None (occurrence: None)
  Receive Date: 20111115
  Receipt Date: 20111108
  Transmission Date: 20120403
  Serious: Yes (Other)
  Sender: FDA-Public Use
  Company Number: PHEH2011US008880

PATIENT

DRUGS (1)
  1. AFINITOR [Suspect]

REACTIONS (3)
  - RASH ERYTHEMATOUS [None]
  - VASCULITIS [None]
  - NODULE [None]
